FAERS Safety Report 12548398 (Version 1)
Quarter: 2016Q3

REPORT INFORMATION
  Report Type: Spontaneous
  Country: US (occurrence: US)
  Receive Date: 20160712
  Receipt Date: 20160712
  Transmission Date: 20161109
  Serious: Yes (Hospitalization)
  Sender: FDA-Public Use
  Company Number: US-AUROBINDO-AUR-APL-2016-08642

PATIENT

DRUGS (2)
  1. HEROIN [Suspect]
     Active Substance: DIACETYLMORPHINE
     Indication: PRODUCT USED FOR UNKNOWN INDICATION
  2. ALPRAZOLAM. [Suspect]
     Active Substance: ALPRAZOLAM
     Indication: PRODUCT USED FOR UNKNOWN INDICATION
     Route: 048

REACTIONS (6)
  - Pupil fixed [Recovering/Resolving]
  - Unresponsive to stimuli [Recovering/Resolving]
  - Overdose [Recovering/Resolving]
  - Deafness neurosensory [Recovering/Resolving]
  - Bradypnoea [Recovering/Resolving]
  - Cardiomyopathy acute [Unknown]
